FAERS Safety Report 7434725-0 (Version None)
Quarter: 2011Q2

REPORT INFORMATION
  Report Type: 
  Country: None (occurrence: None)
  Receive Date: 20110425
  Receipt Date: 20110420
  Transmission Date: 20111010
  Serious: Yes (Hospitalization)
  Sender: FDA-Public Use
  Company Number: JP-PFIZER INC-2011074519

PATIENT
  Age: 73 Year
  Sex: Male
  Weight: 80 kg

DRUGS (8)
  1. AMLODIPINE AND ATORVASTATIN [Suspect]
     Indication: HYPERTENSION
     Dosage: UNK
     Route: 048
     Dates: start: 20101129, end: 20110313
  2. AMLODIPINE AND ATORVASTATIN [Suspect]
     Indication: HYPERCHOLESTEROLAEMIA
  3. GLYCORAN [Concomitant]
     Indication: DIABETES MELLITUS
     Dosage: UNK
     Route: 048
     Dates: start: 20080728
  4. AMLODIPINE AND ATORVASTATIN [Suspect]
     Indication: ANGINA PECTORIS
  5. VOGLIBOSE [Concomitant]
     Indication: DIABETES MELLITUS
     Dosage: UNK
     Route: 048
     Dates: start: 20080331
  6. AMARYL [Concomitant]
     Indication: DIABETES MELLITUS
     Dosage: UNK
     Route: 048
  7. AMARYL [Concomitant]
     Dosage: UNK
     Dates: start: 20080225
  8. DIOVAN [Concomitant]
     Indication: HYPERTENSION
     Dosage: UNK
     Route: 048
     Dates: start: 20060303

REACTIONS (1)
  - ATRIOVENTRICULAR BLOCK COMPLETE [None]
